FAERS Safety Report 12209296 (Version 1)
Quarter: 2016Q1

REPORT INFORMATION
  Report Type: Spontaneous
  Country: US (occurrence: US)
  Receive Date: 20160324
  Receipt Date: 20160324
  Transmission Date: 20160526
  Serious: Yes (Hospitalization)
  Sender: FDA-Public Use
  Company Number: US-MEDICURE INC.-1049649

PATIENT
  Age: 84 Year
  Sex: Female

DRUGS (4)
  1. AGGRASTAT [Suspect]
     Active Substance: TIROFIBAN HYDROCHLORIDE
     Route: 042
  2. AGGRASTAT [Suspect]
     Active Substance: TIROFIBAN HYDROCHLORIDE
     Indication: ANTIPLATELET THERAPY
     Route: 040
  3. BRILINTA [Concomitant]
     Active Substance: TICAGRELOR
  4. HEPARIN [Concomitant]
     Active Substance: HEPARIN SODIUM

REACTIONS (1)
  - Vascular stent thrombosis [Recovered/Resolved]
